FAERS Safety Report 7764952-4 (Version None)
Quarter: 2011Q3

REPORT INFORMATION
  Report Type: 
  Country: None (occurrence: None)
  Receive Date: 20110921
  Receipt Date: 20110915
  Transmission Date: 20111222
  Serious: Yes (Hospitalization, Other)
  Sender: FDA-Public Use
  Company Number: JP-PFIZER INC-2011198011

PATIENT
  Age: 90 Year
  Sex: Female

DRUGS (3)
  1. LYRICA [Suspect]
     Indication: PAIN
     Dosage: 75 MG DAILY
     Route: 048
     Dates: start: 20110808
  2. LOXONIN [Concomitant]
     Indication: PAIN
     Dosage: 180 MG DAILY
     Route: 048
     Dates: start: 20110808
  3. MUCOSTA [Concomitant]
     Indication: GASTRITIS
     Dosage: UNK
     Route: 048
     Dates: start: 20110808

REACTIONS (3)
  - BRADYCARDIA [None]
  - OEDEMA [None]
  - CEREBRAL HAEMORRHAGE [None]
